FAERS Safety Report 9008506 (Version 1)
Quarter: 2013Q1

REPORT INFORMATION
  Report Type: Spontaneous
  Country: FR (occurrence: FR)
  Receive Date: 20130111
  Receipt Date: 20130111
  Transmission Date: 20140127
  Serious: Yes (Other)
  Sender: FDA-Public Use
  Company Number: FR-PFIZER INC-2013010002

PATIENT
  Age: 69 Year
  Sex: Male

DRUGS (1)
  1. TAHOR [Suspect]
     Dosage: 10 MG, UNK

REACTIONS (2)
  - Pneumonia [Unknown]
  - Aspiration [Unknown]
